FAERS Safety Report 23407382 (Version 1)
Quarter: 2024Q1

REPORT INFORMATION
  Report Type: Spontaneous
  Country: DK (occurrence: DK)
  Receive Date: 20240116
  Receipt Date: 20240116
  Transmission Date: 20240410
  Serious: Yes (Life-Threatening, Hospitalization, Other)
  Sender: FDA-Public Use
  Company Number: None

PATIENT
  Age: 84 Year
  Sex: Female

DRUGS (8)
  1. ELIQUIS [Suspect]
     Active Substance: APIXABAN
     Indication: Atrial fibrillation
     Route: 048
     Dates: start: 20231230, end: 202401
  2. LEVOTHYROXINE [Concomitant]
     Active Substance: LEVOTHYROXINE
     Indication: Hypothyroidism
     Route: 048
     Dates: start: 20120529
  3. LEVOTHYROXINE [Concomitant]
     Active Substance: LEVOTHYROXINE
     Route: 048
     Dates: start: 20120529
  4. ZARATOR [ATORVASTATIN] [Concomitant]
     Indication: Hypercholesterolaemia
     Route: 048
     Dates: start: 20230103
  5. HYPROSAN [Concomitant]
     Indication: Dry eye
     Dosage: DOSAGE: IN BOTH EYES
     Route: 050
     Dates: start: 20231115
  6. KETOROLAC TROMETHAMINE [Concomitant]
     Active Substance: KETOROLAC TROMETHAMINE
     Indication: Dry eye
     Dosage: DOSAGE: IN BOTH EYES
     Route: 050
     Dates: start: 20230915
  7. METOPROLOL SUCCINATE [Concomitant]
     Active Substance: METOPROLOL SUCCINATE
     Indication: Hypertension
     Route: 048
     Dates: start: 20210713
  8. ACETAMINOPHEN [Concomitant]
     Active Substance: ACETAMINOPHEN
     Indication: Pain
     Dosage: DOSAGE: WHEN NEEDED, MAX 3 TIMES DAILY
     Route: 048
     Dates: start: 20230102

REACTIONS (4)
  - Hemianopia [Unknown]
  - Confusional state [Unknown]
  - Cerebral haemorrhage [Not Recovered/Not Resolved]
  - Hemiparesis [Unknown]

NARRATIVE: CASE EVENT DATE: 20240103
